FAERS Safety Report 8198240-1 (Version None)
Quarter: 2012Q1

REPORT INFORMATION
  Report Type: 
  Country: None (occurrence: None)
  Receive Date: 20120309
  Receipt Date: 20111213
  Transmission Date: 20120608
  Serious: No
  Sender: FDA-Public Use
  Company Number: US-AMGEN-USASP2011066385

PATIENT
  Age: 57 Year
  Sex: Female

DRUGS (7)
  1. MULTI-VITAMIN [Concomitant]
  2. PROLIA [Suspect]
     Indication: OSTEOPOROSIS POSTMENOPAUSAL
     Dosage: 60 MG, Q6MO
     Dates: start: 20101210
  3. VITAMIN D [Concomitant]
     Dosage: 1 MG, QD
  4. CALCIUM WITH VITAMIN D [Concomitant]
     Dosage: UNK UNK, QD
  5. MAGNESIUM [Concomitant]
     Dosage: 2 MG, QD
  6. AMBIEN [Concomitant]
     Dosage: UNK MG, UNK
  7. SYNTHROID [Concomitant]
     Dosage: 1 MUG, QD

REACTIONS (1)
  - HERPES ZOSTER [None]
